FAERS Safety Report 4925801-2 (Version None)
Quarter: 2006Q1

REPORT INFORMATION
  Report Type: 
  Country: None (occurrence: None)
  Receive Date: 20060228
  Receipt Date: 20050323
  Transmission Date: 20060701
  Serious: No
  Sender: FDA-Public Use
  Company Number: US-GLAXOSMITHKLINE-A0551076A

PATIENT
  Age: 31 Year
  Sex: Female
  Weight: 63.6 kg

DRUGS (4)
  1. LAMICTAL [Suspect]
     Indication: DRUG USE FOR UNKNOWN INDICATION
     Dosage: 100MG UNKNOWN
     Route: 048
     Dates: start: 20050101
  2. WELLBUTRIN SR [Concomitant]
     Dosage: 300MG PER DAY
  3. AMBIEN [Concomitant]
  4. ATIVAN [Concomitant]

REACTIONS (3)
  - DYSGEUSIA [None]
  - DYSPHAGIA [None]
  - RETCHING [None]
